FAERS Safety Report 4541049-8 (Version None)
Quarter: 2004Q4

REPORT INFORMATION
  Report Type: 
  Country: None (occurrence: None)
  Receive Date: 20041228
  Receipt Date: 20041215
  Transmission Date: 20050328
  Serious: No
  Sender: FDA-Public Use
  Company Number: B0361873A

PATIENT
  Age: 43 Year
  Sex: Female

DRUGS (1)
  1. TRIZIVIR [Suspect]
     Indication: HIV INFECTION
     Dosage: UNKNOWN
     Route: 065

REACTIONS (5)
  - BACK PAIN [None]
  - HYPOKINESIA [None]
  - LIPODYSTROPHY ACQUIRED [None]
  - PAIN [None]
  - PAIN IN EXTREMITY [None]
